FAERS Safety Report 5586118-9 (Version None)
Quarter: 2007Q4

REPORT INFORMATION
  Report Type: 
  Country: None (occurrence: None)
  Receive Date: 20071205
  Receipt Date: 20071003
  Transmission Date: 20080405
  Serious: Yes (Other)
  Sender: FDA-Public Use
  Company Number: US-WYE-H00558107

PATIENT
  Age: 35 Year
  Sex: Male
  Weight: 68.1 kg

DRUGS (1)
  1. EFFEXOR XR [Suspect]
     Indication: MAJOR DEPRESSION
     Dosage: 75 MG 1 X PER 1 DAY, ORAL, 37.5 MG1X1 D
     Route: 048

REACTIONS (1)
  - RESTLESS LEGS SYNDROME [None]
